FAERS Safety Report 5268692-5 (Version None)
Quarter: 2007Q1

REPORT INFORMATION
  Report Type: 
  Country: None (occurrence: None)
  Receive Date: 20070319
  Receipt Date: 20070309
  Transmission Date: 20070707
  Serious: Yes (Other)
  Sender: FDA-Public Use
  Company Number: US-ELI_LILLY_AND_COMPANY-US200703001687

PATIENT
  Age: 74 Year
  Sex: Female
  Weight: 57.142 kg

DRUGS (3)
  1. TERIPARATIDE [Suspect]
     Indication: OSTEOPOROSIS
     Route: 058
     Dates: start: 20050801, end: 20070213
  2. DIOVAN [Concomitant]
  3. LEXAPRO [Concomitant]
     Dosage: 10 MG, UNK

REACTIONS (2)
  - ANXIETY [None]
  - NERVOUSNESS [None]
